FAERS Safety Report 19946026 (Version 1)
Quarter: 2021Q4

REPORT INFORMATION
  Report Type: Other
  Country: TW (occurrence: TW)
  Receive Date: 20211012
  Receipt Date: 20211012
  Transmission Date: 20220304
  Serious: Yes (Other)
  Sender: FDA-Public Use
  Company Number: TW-ROCHE-2930501

PATIENT

DRUGS (2)
  1. PEGINTERFERON ALFA-2A [Suspect]
     Active Substance: PEGINTERFERON ALFA-2A
     Indication: Chronic hepatitis C
     Route: 065
  2. RIBAVIRIN [Suspect]
     Active Substance: RIBAVIRIN
     Indication: Chronic hepatitis C
     Route: 065

REACTIONS (5)
  - Suicidal ideation [Unknown]
  - Respiratory distress [Unknown]
  - Neutropenia [Unknown]
  - Cellulitis [Unknown]
  - Depression [Unknown]
